FAERS Safety Report 16738005 (Version 3)
Quarter: 2019Q3

REPORT INFORMATION
  Report Type: Report from Study
  Country: None (occurrence: DE)
  Receive Date: 20190824
  Receipt Date: 20190911
  Transmission Date: 20191005
  Serious: Yes (Death, Hospitalization)
  Sender: FDA-Public Use
  Company Number: DE-ABBVIE-19K-062-2884199-00

PATIENT
  Age: 72 Year
  Sex: Male

DRUGS (2)
  1. DUODOPA [Suspect]
     Active Substance: CARBIDOPA\LEVODOPA
     Indication: PARKINSON^S DISEASE
     Dosage: ADJUSTMENT PHASE
     Route: 050
     Dates: start: 20190808, end: 2019
  2. DUODOPA [Suspect]
     Active Substance: CARBIDOPA\LEVODOPA
     Dosage: MD: 14ML, CRD: 3.7ML/H, ED: 1.5ML; STRENGTH: 20 MG/ML 5 MG/ML
     Route: 050
     Dates: start: 2019

REACTIONS (7)
  - Pneumonia [Not Recovered/Not Resolved]
  - Wrong technique in device usage process [Unknown]
  - Stoma site inflammation [Not Recovered/Not Resolved]
  - Death [Fatal]
  - Abdominal pain [Not Recovered/Not Resolved]
  - Akinesia [Recovering/Resolving]
  - On and off phenomenon [Recovering/Resolving]

NARRATIVE: CASE EVENT DATE: 20190808
